FAERS Safety Report 10511736 (Version 1)
Quarter: 2014Q3

REPORT INFORMATION
  Report Type: Spontaneous
  Country: US (occurrence: None)
  Receive Date: 20140926
  Receipt Date: 20140926
  Transmission Date: 20150326
  Serious: No
  Sender: FDA-Public Use
  Company Number: 1000068438

PATIENT
  Age: 80 Year
  Sex: Female

DRUGS (7)
  1. LINZESS [Suspect]
     Active Substance: LINACLOTIDE
     Indication: IRRITABLE BOWEL SYNDROME
     Route: 048
     Dates: start: 2014
  2. ADVAIR (FLUTICASONE, SALMETEROL) (FLUTICASONE, SALMETEROL) [Concomitant]
  3. DICYCLOMINE (DICYCLOMINE) (DICYCLOMINE) [Concomitant]
  4. PREDNISOLONE (PREDNISOLONE) (PREDNISOLONE) [Concomitant]
     Active Substance: PREDNISOLONE
  5. LISINOPRIL (LISINOPRIL) (LISINOPRIL) [Concomitant]
     Active Substance: LISINOPRIL
  6. PROAIR HFA (SALBUTAMOL SULFATE) (SALBUTAMOL SULFATE) [Concomitant]
  7. NEXIUM (ESOMEPRAZOLE) (ESOMEPRAZOLE) [Concomitant]

REACTIONS (1)
  - Abdominal distension [None]

NARRATIVE: CASE EVENT DATE: 2014
